FAERS Safety Report 4755446-9 (Version None)
Quarter: 2005Q3

REPORT INFORMATION
  Report Type: 
  Country: None (occurrence: None)
  Receive Date: 20050826
  Receipt Date: 20050811
  Transmission Date: 20060218
  Serious: Yes (Hospitalization)
  Sender: FDA-Public Use
  Company Number: 05-08-1411

PATIENT

DRUGS (1)
  1. FLUOXETINE [Suspect]
     Dosage: 20MG QD ORAL
     Route: 048
     Dates: start: 20050101

REACTIONS (2)
  - HEADACHE [None]
  - MENINGITIS [None]
